FAERS Safety Report 8247328-5 (Version None)
Quarter: 2012Q1

REPORT INFORMATION
  Report Type: 
  Country: None (occurrence: None)
  Receive Date: 20120328
  Receipt Date: 20120328
  Transmission Date: 20120608
  Serious: No
  Sender: FDA-Public Use
  Company Number: None

PATIENT
  Age: 41 Year
  Sex: Female

DRUGS (1)
  1. DICLOFENAC SODIUM [Suspect]
     Dates: start: 20091209, end: 20091212

REACTIONS (19)
  - VOMITING [None]
  - STOOL ANALYSIS ABNORMAL [None]
  - NAUSEA [None]
  - ASPARTATE AMINOTRANSFERASE INCREASED [None]
  - OEDEMA [None]
  - JAUNDICE [None]
  - BLOOD ALKALINE PHOSPHATASE INCREASED [None]
  - LIVER DISORDER [None]
  - ABDOMINAL DISTENSION [None]
  - MUSCLE SPASMS [None]
  - ALANINE AMINOTRANSFERASE INCREASED [None]
  - RASH [None]
  - INSOMNIA [None]
  - HEADACHE [None]
  - ANTINUCLEAR ANTIBODY POSITIVE [None]
  - ARTHRALGIA [None]
  - GALLBLADDER DISORDER [None]
  - FATIGUE [None]
  - PRURITUS [None]
